FAERS Safety Report 25728020 (Version 1)
Quarter: 2025Q3

REPORT INFORMATION
  Report Type: Spontaneous
  Country: US (occurrence: None)
  Receive Date: 20250826
  Receipt Date: 20250826
  Transmission Date: 20251021
  Serious: Yes (Hospitalization)
  Sender: FDA-CTU
  Company Number: None

PATIENT
  Age: 60 Year
  Sex: Female

DRUGS (11)
  1. LENALIDOMIDE [Suspect]
     Active Substance: LENALIDOMIDE
     Route: 048
  2. ABILIFY [Concomitant]
     Active Substance: ARIPIPRAZOLE
  3. ACETAMINOPHEN [Concomitant]
     Active Substance: ACETAMINOPHEN
  4. ASPIRIN [Concomitant]
     Active Substance: ASPIRIN
  5. ATORVASTATIN [Concomitant]
     Active Substance: ATORVASTATIN
  6. BRIVIACT [Concomitant]
     Active Substance: BRIVARACETAM
  7. CLONIDINE [Concomitant]
     Active Substance: CLONIDINE
  8. DULOXETINE [Concomitant]
     Active Substance: DULOXETINE
  9. ESOMEPRAZOLE MAGNESIUM [Concomitant]
     Active Substance: ESOMEPRAZOLE MAGNESIUM
  10. FLUTICASONE AER [Concomitant]
  11. IPRATROPIUM/SOL ALBUTER [Concomitant]

REACTIONS (4)
  - Hospitalisation [None]
  - Intentional dose omission [None]
  - Internal haemorrhage [None]
  - Nausea [None]

NARRATIVE: CASE EVENT DATE: 20250801
